FAERS Safety Report 11910004 (Version 6)
Quarter: 2017Q1

REPORT INFORMATION
  Report Type: Spontaneous
  Country: US (occurrence: US)
  Receive Date: 20160112
  Receipt Date: 20170330
  Transmission Date: 20170428
  Serious: Yes (Hospitalization)
  Sender: FDA-Public Use
  Company Number: US-JNJFOC-20160106361

PATIENT
  Sex: Male

DRUGS (25)
  1. BENADRYL [Concomitant]
     Active Substance: DIPHENHYDRAMINE HYDROCHLORIDE
     Indication: SLEEP DISORDER THERAPY
     Dosage: ONCE OR TWICE  DAILY
     Route: 048
     Dates: start: 20151020
  2. BENADRYL [Concomitant]
     Active Substance: DIPHENHYDRAMINE HYDROCHLORIDE
     Indication: PREMEDICATION
     Dosage: ONCE OR TWICE  DAILY
     Route: 048
     Dates: start: 20151020
  3. FUROSEMIDE. [Concomitant]
     Active Substance: FUROSEMIDE
     Route: 048
     Dates: start: 20150417
  4. METOPROLOL SUCCINATE. [Concomitant]
     Active Substance: METOPROLOL SUCCINATE
     Route: 048
  5. CLOZAPINE. [Concomitant]
     Active Substance: CLOZAPINE
     Indication: PRODUCT USED FOR UNKNOWN INDICATION
     Route: 048
     Dates: start: 2015
  6. BENADRYL [Concomitant]
     Active Substance: DIPHENHYDRAMINE HYDROCHLORIDE
     Indication: AGITATION
     Dosage: ONCE OR TWICE  DAILY
     Route: 048
     Dates: start: 20151020
  7. PLAVIX [Concomitant]
     Active Substance: CLOPIDOGREL BISULFATE
     Dosage: BEDTIME
     Route: 048
     Dates: start: 20150417
  8. INVEGA SUSTENNA [Suspect]
     Active Substance: PALIPERIDONE PALMITATE
     Indication: DEMENTIA
     Route: 030
  9. INVEGA TRINZA [Suspect]
     Active Substance: PALIPERIDONE PALMITATE
     Indication: PRODUCT USED FOR UNKNOWN INDICATION
     Route: 030
     Dates: start: 20150721
  10. BENADRYL [Concomitant]
     Active Substance: DIPHENHYDRAMINE HYDROCHLORIDE
     Indication: ADVERSE DRUG REACTION
     Dosage: ONCE OR TWICE  DAILY
     Route: 048
     Dates: start: 20151020
  11. RANITIDINE. [Concomitant]
     Active Substance: RANITIDINE
     Dosage: 1 EACH TWICE A DAY
     Route: 048
  12. CLOPIDOGREL [Concomitant]
     Active Substance: CLOPIDOGREL BISULFATE
     Route: 065
     Dates: start: 201511
  13. LISINOPRIL. [Concomitant]
     Active Substance: LISINOPRIL
     Route: 048
  14. LOVASTATINE [Concomitant]
     Active Substance: LOVASTATIN
     Dosage: EACH EVENING, WITH EVENING MEAL
     Route: 048
     Dates: start: 20150417
  15. COLACE [Concomitant]
     Active Substance: DOCUSATE SODIUM
     Dosage: BEDTIME
     Route: 048
     Dates: start: 20151020
  16. MIRALAX [Concomitant]
     Active Substance: POLYETHYLENE GLYCOL 3350
     Route: 048
     Dates: start: 20151020
  17. LITHIUM CARBONATE. [Concomitant]
     Active Substance: LITHIUM CARBONATE
     Indication: PRODUCT USED FOR UNKNOWN INDICATION
     Route: 048
     Dates: start: 201511
  18. METFORMIN [Concomitant]
     Active Substance: METFORMIN HYDROCHLORIDE
     Dosage: EACH MORNING, WITH BREAKFAST
     Route: 048
     Dates: start: 20150417
  19. VITAMIN D2 [Concomitant]
     Active Substance: ERGOCALCIFEROL
     Route: 048
  20. ZYPREXA [Concomitant]
     Active Substance: OLANZAPINE
     Indication: PRODUCT USED FOR UNKNOWN INDICATION
     Route: 065
  21. INVEGA SUSTENNA [Suspect]
     Active Substance: PALIPERIDONE PALMITATE
     Indication: DEMENTIA
     Route: 030
     Dates: start: 201507
  22. INVEGA SUSTENNA [Suspect]
     Active Substance: PALIPERIDONE PALMITATE
     Indication: DEMENTIA
     Route: 030
     Dates: start: 201510
  23. INVEGA TRINZA [Suspect]
     Active Substance: PALIPERIDONE PALMITATE
     Indication: PRODUCT USED FOR UNKNOWN INDICATION
     Route: 030
     Dates: start: 201510
  24. ROTADIN [Concomitant]
     Indication: PRODUCT USED FOR UNKNOWN INDICATION
     Dosage: ONCE OR TWICE  DAILY
     Route: 048
  25. OLANZAPINE. [Concomitant]
     Active Substance: OLANZAPINE
     Dosage: 2 EACH 3 TIMES A WEEK
     Route: 048
     Dates: start: 20150428

REACTIONS (30)
  - Hyperhidrosis [Not Recovered/Not Resolved]
  - Weight increased [Recovering/Resolving]
  - Wrong technique in product usage process [Unknown]
  - Rash generalised [Not Recovered/Not Resolved]
  - Inappropriate schedule of drug administration [Unknown]
  - Insomnia [Recovering/Resolving]
  - Dysgeusia [Recovering/Resolving]
  - Schizophrenia [Unknown]
  - Drug hypersensitivity [Unknown]
  - Drug ineffective [Unknown]
  - Agitation [Unknown]
  - Renal failure [Unknown]
  - Underdose [Unknown]
  - Weight decreased [Not Recovered/Not Resolved]
  - Accidental exposure to product [Unknown]
  - Device leakage [Unknown]
  - Muscle spasms [Unknown]
  - Hospitalisation [Recovered/Resolved]
  - Renal pain [Not Recovered/Not Resolved]
  - Musculoskeletal stiffness [Recovering/Resolving]
  - Hypersomnia [Recovering/Resolving]
  - Treatment noncompliance [Unknown]
  - Drug administered at inappropriate site [Unknown]
  - Skin odour abnormal [Not Recovered/Not Resolved]
  - Drug dispensing error [Unknown]
  - Arthralgia [Recovering/Resolving]
  - Weight increased [Unknown]
  - Off label use [Unknown]
  - Nerve injury [Unknown]
  - Product use issue [Unknown]

NARRATIVE: CASE EVENT DATE: 2015
